FAERS Safety Report 7349884-8 (Version None)
Quarter: 2011Q1

REPORT INFORMATION
  Report Type: 
  Country: None (occurrence: None)
  Receive Date: 20110222
  Receipt Date: 20100617
  Transmission Date: 20110831
  Serious: Yes (Disabling)
  Sender: FDA-Public Use
  Company Number: WAES 1006USA03044

PATIENT
  Age: 67 Year
  Sex: Female

DRUGS (7)
  1. ZOCOR [Suspect]
     Indication: BLOOD CHOLESTEROL INCREASED
     Dosage: PO
     Route: 048
     Dates: start: 20100525
  2. ACIDOPHILUS [Concomitant]
  3. PREMARIN [Concomitant]
  4. LORAZEPAM [Concomitant]
  5. VITAMINS (UNSPECIFIED) [Concomitant]
  6. ZYRTEC [Concomitant]
  7. EVENING PRIMROSE OIL [Concomitant]

REACTIONS (5)
  - CONSTIPATION [None]
  - HEADACHE [None]
  - INSOMNIA [None]
  - PAIN [None]
  - MUSCLE SPASMS [None]
